FAERS Safety Report 5050444-2 (Version None)
Quarter: 2006Q3

REPORT INFORMATION
  Report Type: 
  Country: None (occurrence: None)
  Receive Date: 20060707
  Receipt Date: 20060623
  Transmission Date: 20061208
  Serious: Yes (Hospitalization)
  Sender: FDA-Public Use
  Company Number: 060626-0000562

PATIENT
  Age: 31 Year
  Sex: Female

DRUGS (5)
  1. ETHOTOIN (ETHOTOIN) [Suspect]
     Indication: EPILEPSY
     Dosage: 1000 MG;QD;PO
     Route: 048
     Dates: start: 20060519, end: 20060531
  2. CLORAZEPATE DIPOTASSIUM [Suspect]
     Indication: EPILEPSY
     Dosage: 22.5 MG;QD;PO
     Route: 048
     Dates: start: 20020801
  3. PHENYTOIN SODIUM [Concomitant]
  4. ADENINE [Concomitant]
  5. DIAZEPAM [Concomitant]

REACTIONS (2)
  - LYMPHADENITIS [None]
  - PYREXIA [None]
